FAERS Safety Report 15108451 (Version 2)
Quarter: 2018Q3

REPORT INFORMATION
  Report Type: Report from Study
  Country: IT (occurrence: IT)
  Receive Date: 20180705
  Receipt Date: 20180712
  Transmission Date: 20181010
  Serious: Yes (Other)
  Sender: FDA-Public Use
  Company Number: IT-TEVA-2018-IT-919840

PATIENT
  Age: 87 Year
  Sex: Female

DRUGS (10)
  1. CINNARIZINE [Suspect]
     Active Substance: CINNARIZINE
     Indication: TEMPORAL ARTERITIS
     Dosage: 100 MILLIGRAM DAILY;
     Route: 048
     Dates: start: 20150101, end: 20171205
  2. ATORVASTATIN CALCIUM. [Suspect]
     Active Substance: ATORVASTATIN CALCIUM
     Indication: HYPERCHOLESTEROLAEMIA
     Dosage: 20 MILLIGRAM DAILY;
     Route: 048
     Dates: start: 20150101, end: 20171205
  3. DAPAROX 20 MG COMPRESSE RIVESTITE CON FILM [Suspect]
     Active Substance: PAROXETINE HYDROCHLORIDE
     Indication: INTENTIONAL SELF-INJURY
     Route: 048
     Dates: start: 20171205, end: 20171205
  4. LOSAZID 50 MG + 12,5 MG COMPRESSE RIVESTITE CON FILM [Suspect]
     Active Substance: HYDROCHLOROTHIAZIDE\LOSARTAN POTASSIUM
     Indication: INTENTIONAL SELF-INJURY
     Route: 048
     Dates: start: 20171205, end: 20171205
  5. CARDIOASPIRIN 100 MG COMPRESSE GASTRORESISTENTI [Suspect]
     Active Substance: ASPIRIN
     Indication: ARTERIAL THROMBOSIS
     Dosage: 100 MILLIGRAM DAILY;
     Route: 048
     Dates: start: 20150101, end: 20171205
  6. CARDIOASPIRIN 100 MG COMPRESSE GASTRORESISTENTI [Suspect]
     Active Substance: ASPIRIN
     Indication: INTENTIONAL SELF-INJURY
     Route: 048
     Dates: start: 20171205, end: 20171205
  7. DAPAROX 20 MG COMPRESSE RIVESTITE CON FILM [Suspect]
     Active Substance: PAROXETINE HYDROCHLORIDE
     Indication: MAJOR DEPRESSION
     Dosage: 20 MILLIGRAM DAILY;
     Route: 048
     Dates: start: 20150101, end: 20171205
  8. CINNARIZINE [Suspect]
     Active Substance: CINNARIZINE
     Indication: INTENTIONAL SELF-INJURY
     Route: 048
     Dates: start: 20171205, end: 20171205
  9. ATORVASTATIN CALCIUM. [Suspect]
     Active Substance: ATORVASTATIN CALCIUM
     Indication: INTENTIONAL SELF-INJURY
     Route: 048
     Dates: start: 20171205, end: 20171205
  10. LOSAZID 50 MG + 12,5 MG COMPRESSE RIVESTITE CON FILM [Suspect]
     Active Substance: HYDROCHLOROTHIAZIDE\LOSARTAN POTASSIUM
     Indication: HYPERTENSION
     Dosage: 62.5 MILLIGRAM DAILY; 50 MG + 12,5 MG
     Route: 048
     Dates: start: 20150101, end: 20171205

REACTIONS (2)
  - Drug abuse [Recovering/Resolving]
  - Depression [Recovering/Resolving]

NARRATIVE: CASE EVENT DATE: 20171205
